FAERS Safety Report 21255353 (Version 2)
Quarter: 2022Q3

REPORT INFORMATION
  Report Type: Spontaneous
  Country: US (occurrence: US)
  Receive Date: 20220825
  Receipt Date: 20220913
  Transmission Date: 20221026
  Serious: No
  Sender: FDA-Public Use
  Company Number: US-SUNOVION-2022SUN002522

PATIENT
  Age: 53 Year
  Sex: Female

DRUGS (2)
  1. XOPENEX [Suspect]
     Active Substance: LEVALBUTEROL HYDROCHLORIDE
     Indication: Dyspnoea
     Dosage: USED ONCE
     Route: 055
     Dates: start: 20220818
  2. XOPENEX [Suspect]
     Active Substance: LEVALBUTEROL HYDROCHLORIDE
     Indication: Food allergy

REACTIONS (5)
  - Chest discomfort [Unknown]
  - Drug ineffective for unapproved indication [Unknown]
  - Malaise [Unknown]
  - Dyspnoea [Unknown]
  - Off label use [Unknown]

NARRATIVE: CASE EVENT DATE: 20220818
